FAERS Safety Report 4376307-3 (Version None)
Quarter: 2004Q2

REPORT INFORMATION
  Report Type: 
  Country: None (occurrence: None)
  Receive Date: 20040608
  Receipt Date: 20030422
  Transmission Date: 20050107
  Serious: Yes (Other)
  Sender: FDA-Public Use
  Company Number: 200311354BCC

PATIENT
  Sex: Female
  Weight: 83.9154 kg

DRUGS (2)
  1. ALEVE [Suspect]
     Indication: CHONDROPATHY
     Dosage: 220 MG, BID, ORAL
     Route: 048
     Dates: start: 20030122, end: 20030423
  2. CELEBREX [Concomitant]

REACTIONS (1)
  - CONSTIPATION [None]
